FAERS Safety Report 11002676 (Version 3)
Quarter: 2015Q2

REPORT INFORMATION
  Report Type: Spontaneous
  Country: US (occurrence: US)
  Receive Date: 20150408
  Receipt Date: 20150421
  Transmission Date: 20150821
  Serious: Yes (Hospitalization)
  Sender: FDA-Public Use
  Company Number: US-UNITED THERAPEUTICS-UNT-2015-003677

PATIENT
  Age: 30 Year
  Sex: Female
  Weight: 73.47 kg

DRUGS (3)
  1. LETAIRIS [Concomitant]
     Active Substance: AMBRISENTAN
     Indication: PRODUCT USED FOR UNKNOWN INDICATION
  2. REMODULIN [Suspect]
     Active Substance: TREPROSTINIL
     Indication: PULMONARY ARTERIAL HYPERTENSION
     Dosage: 0.01325 ?G/KG, CONTINUING
     Route: 041
     Dates: start: 20150129
  3. REMODULIN [Suspect]
     Active Substance: TREPROSTINIL
     Dosage: 0.01325 ?G/KG, CONTINUING
     Route: 041
     Dates: start: 20150319

REACTIONS (4)
  - Rash [Unknown]
  - Oedema peripheral [Unknown]
  - Pulmonary hypertension [Unknown]
  - Injection site rash [Unknown]

NARRATIVE: CASE EVENT DATE: 20150330
